FAERS Safety Report 5001180-X (Version None)
Quarter: 2006Q2

REPORT INFORMATION
  Report Type: 
  Country: None (occurrence: None)
  Receive Date: 20060512
  Receipt Date: 20060403
  Transmission Date: 20061013
  Serious: Yes (Death, Hospitalization, Other)
  Sender: FDA-Public Use
  Company Number: US-AMGEN-STX174839

PATIENT
  Sex: Female

DRUGS (6)
  1. ENBREL [Suspect]
     Indication: RHEUMATOID ARTHRITIS
     Dates: start: 19991101
  2. CLARITIN [Concomitant]
  3. ANTIDEPRESSANT NOS [Concomitant]
  4. UNSPECIFIED ANTIANXIETY AGENT [Concomitant]
  5. PREDNISONE TAB [Concomitant]
  6. UNSPECIFIED INHALER [Concomitant]

REACTIONS (9)
  - ANAEMIA [None]
  - CYSTITIS [None]
  - DEHYDRATION [None]
  - DIVERTICULITIS [None]
  - HYPERTENSION [None]
  - KIDNEY INFECTION [None]
  - ORGAN FAILURE [None]
  - PNEUMONIA [None]
  - RESPIRATORY FAILURE [None]
